FAERS Safety Report 7681220-X (Version None)
Quarter: 2011Q3

REPORT INFORMATION
  Report Type: 
  Country: None (occurrence: None)
  Receive Date: 20110804
  Receipt Date: 20110725
  Transmission Date: 20111222
  Serious: Yes (Other)
  Sender: FDA-Public Use
  Company Number: 2011SP027344

PATIENT
  Age: 39 Year
  Sex: Female

DRUGS (2)
  1. IMPLANON [Suspect]
     Dosage: 1 DF;    ;SC
     Route: 058
     Dates: start: 20100208, end: 20101026
  2. IMPLANON [Suspect]
     Dosage: 1 DF;    ;SC
     Route: 058
     Dates: end: 20100208

REACTIONS (5)
  - IMPLANT SITE PARAESTHESIA [None]
  - COMPLICATION OF DEVICE INSERTION [None]
  - IMPLANT SITE PAIN [None]
  - IMPLANT SITE IRRITATION [None]
  - NEUROPATHY PERIPHERAL [None]
